FAERS Safety Report 5895726-7 (Version None)
Quarter: 2008Q3

REPORT INFORMATION
  Report Type: 
  Country: None (occurrence: None)
  Receive Date: 20080924
  Receipt Date: 20080805
  Transmission Date: 20090109
  Serious: No
  Sender: FDA-Public Use
  Company Number: US-BAYER-200826267NA

PATIENT
  Age: 53 Year
  Sex: Female
  Weight: 68 kg

DRUGS (5)
  1. CLIMARA [Suspect]
     Indication: DRUG USE FOR UNKNOWN INDICATION
     Route: 061
  2. DEPAKOTE [Concomitant]
     Indication: DRUG USE FOR UNKNOWN INDICATION
     Route: 048
  3. DEPAKOTE [Concomitant]
     Route: 048
  4. ZOCOR [Concomitant]
     Indication: DRUG USE FOR UNKNOWN INDICATION
  5. CYMBALTA [Concomitant]
     Indication: DRUG USE FOR UNKNOWN INDICATION

REACTIONS (5)
  - BREAST MASS [None]
  - HOT FLUSH [None]
  - MOOD SWINGS [None]
  - NO ADVERSE EVENT [None]
  - PANIC ATTACK [None]
